FAERS Safety Report 18589441 (Version 1)
Quarter: 2020Q4

REPORT INFORMATION
  Report Type: Spontaneous
  Country: CZ (occurrence: CZ)
  Receive Date: 20201208
  Receipt Date: 20201208
  Transmission Date: 20210114
  Serious: Yes (Hospitalization, Other)
  Sender: FDA-Public Use
  Company Number: CZ-INDICUS PHARMA-000734

PATIENT
  Age: 81 Year
  Sex: Female

DRUGS (9)
  1. ROSUVASTATIN. [Interacting]
     Active Substance: ROSUVASTATIN
     Indication: HYPERLIPIDAEMIA
  2. RILMENIDINE/RILMENIDINE PHOSPHATE [Interacting]
     Active Substance: RILMENIDINE
     Indication: HYPERTENSION
  3. BETAXOLOL. [Interacting]
     Active Substance: BETAXOLOL
     Indication: PRODUCT USED FOR UNKNOWN INDICATION
  4. GLIQUIDONE [Interacting]
     Active Substance: GLIQUIDONE
     Indication: HYPERTENSION
  5. HYDROCHLOROTHIAZIDE. [Interacting]
     Active Substance: HYDROCHLOROTHIAZIDE
     Indication: CHRONIC KIDNEY DISEASE
  6. METFORMIN [Suspect]
     Active Substance: METFORMIN HYDROCHLORIDE
     Indication: TYPE 2 DIABETES MELLITUS
  7. AMLODIPINE [Interacting]
     Active Substance: AMLODIPINE BESYLATE
     Indication: HYPERTENSION
  8. ANAPREX [Interacting]
     Active Substance: ANASTROZOLE
     Indication: BREAST CANCER
     Dates: start: 20160905, end: 20160908
  9. TELMISARTAN. [Interacting]
     Active Substance: TELMISARTAN
     Indication: HYPERTENSION
     Dosage: 40 MG DAILY REDUCED

REACTIONS (3)
  - Drug interaction [Unknown]
  - Jaundice [Recovered/Resolved]
  - Drug-induced liver injury [Recovered/Resolved]
